FAERS Safety Report 7322845-0 (Version None)
Quarter: 2011Q1

REPORT INFORMATION
  Report Type: 
  Country: None (occurrence: None)
  Receive Date: 20110301
  Receipt Date: 20110218
  Transmission Date: 20110831
  Serious: Yes (Death, Hospitalization)
  Sender: FDA-Public Use
  Company Number: US-BAXTER-2010BH030022

PATIENT
  Age: 73 Year
  Sex: Male
  Weight: 77 kg

DRUGS (14)
  1. SAW PALMETTO [Concomitant]
     Route: 048
  2. TIOTROPIUM BROMIDE [Concomitant]
  3. DILTIAZEM [Concomitant]
     Route: 048
  4. ASPIRIN [Concomitant]
     Route: 048
  5. ALBUTEROL [Concomitant]
  6. OSCAL [Concomitant]
     Route: 048
  7. ARALAST NP [Suspect]
     Indication: ALPHA-1 ANTI-TRYPSIN DEFICIENCY
     Route: 042
  8. PROSCAR [Concomitant]
     Route: 048
  9. VITAMIN D [Concomitant]
     Route: 048
  10. CHONDROITIN W/GLUCOSAMINE [Concomitant]
     Route: 048
  11. ARALAST NP [Suspect]
     Route: 042
     Dates: end: 20101210
  12. MULTI-VITAMINS [Concomitant]
     Route: 048
  13. FISH OIL [Concomitant]
     Route: 048
  14. FLOVENT [Concomitant]

REACTIONS (2)
  - ANEURYSM [None]
  - VASCULAR DISSECTION [None]
